FAERS Safety Report 7218490-8 (Version None)
Quarter: 2011Q1

REPORT INFORMATION
  Report Type: 
  Country: None (occurrence: None)
  Receive Date: 20110110
  Receipt Date: 20110106
  Transmission Date: 20110831
  Serious: Yes (Other)
  Sender: FDA-Public Use
  Company Number: US-PFIZER INC-2010112811

PATIENT
  Age: 53 Year
  Sex: Female
  Weight: 66 kg

DRUGS (3)
  1. PROVERA [Suspect]
     Dosage: UNK
  2. PREMARIN [Suspect]
     Dosage: 0.625 MG, DAILY
     Dates: start: 20100101
  3. MULTIVITAMIN [Concomitant]

REACTIONS (4)
  - LIBIDO DECREASED [None]
  - MANIA [None]
  - FEELING ABNORMAL [None]
  - ABNORMAL BEHAVIOUR [None]
